FAERS Safety Report 6478411-2 (Version None)
Quarter: 2009Q4

REPORT INFORMATION
  Report Type: 
  Country: None (occurrence: None)
  Receive Date: 20091207
  Receipt Date: 20091129
  Transmission Date: 20100525
  Serious: Yes (Hospitalization, Other)
  Sender: FDA-Public Use
  Company Number: PHEH2008US08703

PATIENT
  Sex: Female

DRUGS (20)
  1. ZOMETA [Suspect]
     Indication: NEOPLASM MALIGNANT
     Dosage: UNK
     Dates: end: 20060701
  2. AREDIA [Suspect]
     Dosage: 60MG
     Route: 042
  3. CHEMOTHERAPEUTICS NOS [Concomitant]
  4. FEMARA [Concomitant]
  5. MS CONTIN [Concomitant]
  6. ATIVAN [Concomitant]
  7. VICODIN [Concomitant]
  8. NEXIUM [Concomitant]
  9. ACIPHEX [Concomitant]
  10. LINEZOLID [Concomitant]
  11. HORMONES NOS [Concomitant]
  12. VIVELLE [Concomitant]
     Route: 062
  13. SOMA [Concomitant]
  14. MOTRIN [Concomitant]
  15. DURAGESIC-100 [Concomitant]
  16. PANTOPRAZOLE [Suspect]
  17. ARIMIDEX [Concomitant]
  18. POTASSIUM GLUCONATE TAB [Concomitant]
  19. PHENERGAN ^AVENTIS PHARMA^ [Concomitant]
  20. COLACE [Concomitant]

REACTIONS (58)
  - ABDOMINAL PAIN UPPER [None]
  - ABSCESS JAW [None]
  - ACTIVITIES OF DAILY LIVING IMPAIRED [None]
  - ALTERED VISUAL DEPTH PERCEPTION [None]
  - ANAEMIA [None]
  - ANHEDONIA [None]
  - ANXIETY [None]
  - BACTERIAL TEST POSITIVE [None]
  - BLOOD ALKALINE PHOSPHATASE INCREASED [None]
  - BLOOD CALCIUM INCREASED [None]
  - CARCINOEMBRYONIC ANTIGEN INCREASED [None]
  - CARDIOMEGALY [None]
  - CELLULITIS [None]
  - CENTRAL VENOUS CATHETERISATION [None]
  - COMA [None]
  - COORDINATION ABNORMAL [None]
  - DEBRIDEMENT [None]
  - DEFORMITY [None]
  - DEHYDRATION [None]
  - DENTAL FISTULA [None]
  - EATING DISORDER SYMPTOM [None]
  - EMOTIONAL DISTRESS [None]
  - ENCEPHALOPATHY [None]
  - FLANK PAIN [None]
  - GASTRIC ULCER [None]
  - GASTROINTESTINAL HAEMORRHAGE [None]
  - GASTROOESOPHAGEAL REFLUX DISEASE [None]
  - HEPATIC LESION [None]
  - HYPOAESTHESIA ORAL [None]
  - INJURY [None]
  - JAW DISORDER [None]
  - JOINT RANGE OF MOTION DECREASED [None]
  - LUNG HYPERINFLATION [None]
  - MALIGNANT NEOPLASM PROGRESSION [None]
  - MASTICATION DISORDER [None]
  - METASTASES TO SPLEEN [None]
  - MOUTH ULCERATION [None]
  - MUSCLE SPASMS [None]
  - MUSCULOSKELETAL STIFFNESS [None]
  - OSTEOMYELITIS [None]
  - OSTEONECROSIS [None]
  - OSTEORADIONECROSIS [None]
  - PACKED RED BLOOD CELL TRANSFUSION [None]
  - PAIN [None]
  - PAIN IN JAW [None]
  - PALATAL DISORDER [None]
  - PANCREATIC NEOPLASM [None]
  - PERIODONTITIS [None]
  - POLLAKIURIA [None]
  - PYREXIA [None]
  - RENAL IMPAIRMENT [None]
  - SALIVARY GLAND MASS [None]
  - SPLENIC ARTERY ANEURYSM [None]
  - SWELLING [None]
  - TOOTH EXTRACTION [None]
  - VOMITING [None]
  - WEIGHT DECREASED [None]
  - WOUND INFECTION STAPHYLOCOCCAL [None]
